FAERS Safety Report 10266265 (Version 1)
Quarter: 2014Q2

REPORT INFORMATION
  Report Type: Spontaneous
  Country: US (occurrence: US)
  Receive Date: 20140627
  Receipt Date: 20140627
  Transmission Date: 20141212
  Serious: Yes (Hospitalization, Other)
  Sender: FDA-Public Use
  Company Number: US-ASTRAZENECA-2014SE40598

PATIENT
  Age: 51 Year
  Sex: Female
  Weight: 86.2 kg

DRUGS (14)
  1. NEXIUM [Suspect]
     Indication: EROSIVE OESOPHAGITIS
     Route: 048
     Dates: start: 2004, end: 2013
  2. NEXIUM [Suspect]
     Indication: EROSIVE OESOPHAGITIS
     Route: 048
  3. OMEPRAZOLE OTC [Suspect]
     Indication: EROSIVE OESOPHAGITIS
     Route: 048
     Dates: start: 2013
  4. OMEPRAZOLE OTC [Suspect]
     Indication: EROSIVE OESOPHAGITIS
     Dosage: 20 MG, TAKES 2 ON OCCASION ON DAYS WHEN ITS BAD
     Route: 048
  5. MIRAPEX [Concomitant]
     Indication: RESTLESS LEGS SYNDROME
     Dosage: 0.5 MG/4 PER NIGHT HS
     Route: 048
     Dates: start: 2004
  6. FORTEO [Concomitant]
     Indication: BONE DISORDER
     Dates: start: 2012
  7. SINGULAIR [Concomitant]
     Indication: ASTHMA
     Route: 048
     Dates: start: 2007
  8. ADVAIR [Concomitant]
     Indication: ASTHMA
     Dosage: 250/50 1-2 PRN
     Route: 048
     Dates: start: 2004
  9. NASOCORT [Concomitant]
     Dosage: 1-2 PRN
     Route: 055
     Dates: start: 2004
  10. LEXAPRO [Concomitant]
     Route: 048
     Dates: start: 2000
  11. CARAFATE [Concomitant]
     Dosage: 1GM X 4 DAILY
     Route: 048
     Dates: start: 2009
  12. VICODIN [Concomitant]
     Indication: PAIN
     Dosage: PRN
     Route: 048
  13. XYZAL [Concomitant]
     Indication: MULTIPLE ALLERGIES
     Route: 048
  14. AMLODIPINE BESELATE [Concomitant]
     Indication: BLOOD PRESSURE ABNORMAL
     Dosage: 5 MG  X1.5 TAB DAILY
     Route: 048
     Dates: start: 2014

REACTIONS (8)
  - Sinus polyp [Unknown]
  - Intracranial aneurysm [Unknown]
  - Coma [Unknown]
  - Pelvic fracture [Unknown]
  - Lower limb fracture [Unknown]
  - Weight increased [Unknown]
  - Limb discomfort [Unknown]
  - Intentional product misuse [Unknown]
